FAERS Safety Report 9784789 (Version 2)
Quarter: 2014Q1

REPORT INFORMATION
  Report Type: Spontaneous
  Country: JP (occurrence: JP)
  Receive Date: 20131227
  Receipt Date: 20140117
  Transmission Date: 20141002
  Serious: Yes (Hospitalization)
  Sender: FDA-Public Use
  Company Number: JP-AMGEN-JPNSP2013090587

PATIENT
  Age: 93 Year
  Sex: Female
  Weight: 33 kg

DRUGS (5)
  1. PRALIA [Suspect]
     Indication: OSTEOPOROSIS
     Route: 058
     Dates: start: 20131116, end: 20131116
  2. WARFARIN [Concomitant]
     Indication: ATRIAL FIBRILLATION
     Route: 048
     Dates: start: 20130401, end: 20131228
  3. EDIROL [Concomitant]
     Indication: OSTEOPOROSIS
     Route: 048
     Dates: start: 20131116
  4. CELECOX [Concomitant]
     Indication: FEMORAL NECK FRACTURE
     Route: 048
     Dates: start: 20131109
  5. PRAVASTATIN SODIUM [Concomitant]
     Indication: DYSLIPIDAEMIA
     Route: 048
     Dates: start: 20130401

REACTIONS (2)
  - Femur fracture [Unknown]
  - Hypocalcaemia [Recovered/Resolved]
